FAERS Safety Report 22254908 (Version 1)
Quarter: 2023Q2

REPORT INFORMATION
  Report Type: Spontaneous
  Country: CN (occurrence: CN)
  Receive Date: 20230426
  Receipt Date: 20230426
  Transmission Date: 20230722
  Serious: Yes (Other)
  Sender: FDA-Public Use
  Company Number: None

PATIENT
  Age: 52 Year
  Sex: Female
  Weight: 65 kg

DRUGS (14)
  1. CYCLOPHOSPHAMIDE [Suspect]
     Active Substance: CYCLOPHOSPHAMIDE
     Indication: Breast neoplasm
     Dosage: 1G, QD, DILUTED WITH 250 ML SODIUM CHLORIDE
     Route: 041
     Dates: start: 20230415, end: 20230415
  2. CYCLOPHOSPHAMIDE [Suspect]
     Active Substance: CYCLOPHOSPHAMIDE
     Indication: Chemotherapy
  3. SODIUM CHLORIDE [Suspect]
     Active Substance: SODIUM CHLORIDE
     Indication: Medication dilution
     Dosage: 250 ML, QD, USED TO DILUTE WITH 1 G CYCLOPHOSPHAMIDE
     Route: 041
     Dates: start: 20230415, end: 20230415
  4. DOXORUBICIN HYDROCHLORIDE [Suspect]
     Active Substance: DOXORUBICIN HYDROCHLORIDE
     Indication: Breast neoplasm
     Dosage: 58 MG, QD, DILUTED WITH 5% GLUCOSE 1 BAG
     Route: 041
     Dates: start: 20230415, end: 20230415
  5. DOXORUBICIN HYDROCHLORIDE [Suspect]
     Active Substance: DOXORUBICIN HYDROCHLORIDE
     Indication: Chemotherapy
  6. DEXTROSE [Suspect]
     Active Substance: DEXTROSE\DEXTROSE MONOHYDRATE
     Indication: Medication dilution
     Dosage: 1 BAG, QD, 5% GLUCOSE USED TO DILUTE 58 MG DOXORUBICIN HYDROCHLORIDE LIPOSOME
     Route: 041
     Dates: start: 20230415, end: 20230415
  7. DEXAMETHASONE SODIUM PHOSPHATE [Concomitant]
     Active Substance: DEXAMETHASONE SODIUM PHOSPHATE
     Indication: Discomfort
     Dosage: 5 MG, QD
     Route: 041
     Dates: start: 20230415, end: 20230415
  8. DEXAMETHASONE SODIUM PHOSPHATE [Concomitant]
     Active Substance: DEXAMETHASONE SODIUM PHOSPHATE
     Indication: Chemotherapy
  9. SODIUM CHLORIDE [Concomitant]
     Active Substance: SODIUM CHLORIDE
     Indication: Medication dilution
     Dosage: 250 ML (1 BAG), QD, USED TO DILUTE WITH 0.2 G TIOPRONIN SODIUM
     Route: 041
     Dates: start: 20230415, end: 20230415
  10. SODIUM CHLORIDE [Concomitant]
     Active Substance: SODIUM CHLORIDE
     Dosage: 100 ML(1 BAG), QD, USED TO DILUTE WITH 3 MG GRANISETRON HYDROCHLORIDE
     Route: 041
     Dates: start: 20230415, end: 20230415
  11. TIOPRONIN SODIUM [Concomitant]
     Indication: Chemotherapy
     Dosage: 0.2 G, QD, DILUTED WITH 250 ML (1 BAG) SODIUM CHLORIDE
     Route: 041
     Dates: start: 20230415, end: 20230415
  12. TIOPRONIN SODIUM [Concomitant]
     Indication: Prophylaxis
  13. GRANISETRON HYDROCHLORIDE [Concomitant]
     Active Substance: GRANISETRON HYDROCHLORIDE
     Indication: Chemotherapy
     Dosage: 3 MG, QD, DILUTED WITH 100 ML(1 BAG) SODIUM CHLORIDE
     Route: 041
     Dates: start: 20230415, end: 20230415
  14. GRANISETRON HYDROCHLORIDE [Concomitant]
     Active Substance: GRANISETRON HYDROCHLORIDE
     Indication: Antiemetic supportive care

REACTIONS (4)
  - Flushing [Recovering/Resolving]
  - Chest discomfort [Recovering/Resolving]
  - Palpitations [Recovering/Resolving]
  - Panic reaction [Recovered/Resolved]

NARRATIVE: CASE EVENT DATE: 20230415
